FAERS Safety Report 25414062 (Version 1)
Quarter: 2025Q2

REPORT INFORMATION
  Report Type: Spontaneous
  Country: CH (occurrence: CH)
  Receive Date: 20250609
  Receipt Date: 20250609
  Transmission Date: 20250717
  Serious: Yes (Hospitalization, Other)
  Sender: ALEXION PHARMACEUTICALS
  Company Number: None

PATIENT
  Age: 71 Year
  Weight: 60 kg

DRUGS (8)
  1. CALQUENCE [Interacting]
     Active Substance: ACALABRUTINIB
     Route: 065
  2. PREDNISONE [Interacting]
     Active Substance: PREDNISONE
     Dosage: 10 MILLIGRAM, QD
     Route: 065
  3. PREDNISONE [Interacting]
     Active Substance: PREDNISONE
     Route: 065
  4. PREDNISONE [Interacting]
     Active Substance: PREDNISONE
     Route: 065
  5. PREDNISONE [Interacting]
     Active Substance: PREDNISONE
     Route: 065
  6. PREDNISONE [Interacting]
     Active Substance: PREDNISONE
     Route: 065
  7. PREDNISONE [Interacting]
     Active Substance: PREDNISONE
     Route: 065
  8. PREDNISONE [Interacting]
     Active Substance: PREDNISONE
     Route: 065

REACTIONS (4)
  - Diplopia [Recovered/Resolved]
  - VIth nerve paralysis [Recovered/Resolved]
  - Aspergillus infection [Not Recovered/Not Resolved]
  - Drug interaction [Recovered/Resolved]
